FAERS Safety Report 7418434-X (Version None)
Quarter: 2011Q2

REPORT INFORMATION
  Report Type: 
  Country: None (occurrence: None)
  Receive Date: 20110415
  Receipt Date: 20110408
  Transmission Date: 20111010
  Serious: Yes (Hospitalization)
  Sender: FDA-Public Use
  Company Number: PHHY2011US30509

PATIENT
  Age: 55 Year
  Sex: Male

DRUGS (4)
  1. METHADONE [Suspect]
     Indication: PAIN
     Dosage: 15 MG, QD
     Dates: start: 20040322
  2. METHADONE [Suspect]
     Dosage: 30 MG, QD
  3. PAMELOR [Concomitant]
     Dosage: UNK UKN, UNK
     Dates: start: 20050118
  4. METHADONE [Suspect]
     Dosage: 40 MG, QD

REACTIONS (3)
  - SEPTIC SHOCK [None]
  - RENAL FAILURE ACUTE [None]
  - ELECTROCARDIOGRAM QT PROLONGED [None]
